FAERS Safety Report 6480477-0 (Version None)
Quarter: 2009Q4

REPORT INFORMATION
  Report Type: 
  Country: None (occurrence: None)
  Receive Date: 20091202
  Receipt Date: 20091118
  Transmission Date: 20100525
  Serious: Yes (Other)
  Sender: FDA-Public Use
  Company Number: 440026M09USA

PATIENT
  Age: 53 Year
  Sex: Female

DRUGS (1)
  1. SEROSTIM [Suspect]
     Indication: HIV WASTING SYNDROME
     Dosage: 1 IN 2 DAYS,

REACTIONS (3)
  - DISEASE RECURRENCE [None]
  - PAPILLOMA VIRAL INFECTION [None]
  - VULVAL DISORDER [None]
